FAERS Safety Report 23098404 (Version 1)
Quarter: 2023Q4

REPORT INFORMATION
  Report Type: Spontaneous
  Country: US (occurrence: US)
  Receive Date: 20231023
  Receipt Date: 20231023
  Transmission Date: 20240110
  Serious: Yes (Hospitalization, Other)
  Sender: FDA-Public Use
  Company Number: US-ELI_LILLY_AND_COMPANY-US202310008047

PATIENT
  Sex: Male

DRUGS (6)
  1. BASAGLAR [Suspect]
     Active Substance: INSULIN GLARGINE
     Indication: Type 2 diabetes mellitus
     Dosage: 12-14 MG, DAILY
     Route: 058
  2. BASAGLAR [Suspect]
     Active Substance: INSULIN GLARGINE
     Indication: Type 2 diabetes mellitus
     Dosage: 12-14 MG, DAILY
     Route: 058
  3. BASAGLAR [Suspect]
     Active Substance: INSULIN GLARGINE
     Dosage: 12-14 MG, DAILY
     Route: 058
  4. BASAGLAR [Suspect]
     Active Substance: INSULIN GLARGINE
     Dosage: 12-14 MG, DAILY
     Route: 058
  5. PREDNISONE [Concomitant]
     Active Substance: PREDNISONE
     Indication: Product used for unknown indication
     Dosage: LOW DOSE
  6. MYCOPHENOLIC ACID [Concomitant]
     Active Substance: MYCOPHENOLIC ACID
     Indication: Prophylaxis against transplant rejection

REACTIONS (2)
  - Complications of transplanted kidney [Recovered/Resolved]
  - Weight decreased [Unknown]
